FAERS Safety Report 5221477-8 (Version None)
Quarter: 2007Q1

REPORT INFORMATION
  Report Type: 
  Country: None (occurrence: None)
  Receive Date: 20070126
  Receipt Date: 20070116
  Transmission Date: 20070707
  Serious: Yes (Other)
  Sender: FDA-Public Use
  Company Number: US-PFIZER INC-2007004881

PATIENT
  Age: 30 Year
  Sex: Male

DRUGS (1)
  1. GEODON [Suspect]
     Indication: SCHIZOPHRENIA
     Dosage: DAILY DOSE:160MG-FREQ:DAILY
     Dates: start: 20061211, end: 20070101

REACTIONS (2)
  - PARANOIA [None]
  - WEIGHT DECREASED [None]
